FAERS Safety Report 25599959 (Version 1)
Quarter: 2025Q3

REPORT INFORMATION
  Report Type: Spontaneous
  Country: CU (occurrence: CU)
  Receive Date: 20250724
  Receipt Date: 20250724
  Transmission Date: 20251020
  Serious: Yes (Hospitalization)
  Sender: ALKEM
  Company Number: None

PATIENT
  Age: 6 Year
  Sex: Male

DRUGS (4)
  1. ITRACONAZOLE [Suspect]
     Active Substance: ITRACONAZOLE
     Indication: Gastrointestinal mucormycosis
     Dosage: 100 MILLIGRAM, BID (EVERY 12 HOUR) (TABLET)
     Route: 048
     Dates: start: 20040713, end: 20040909
  2. ITRACONAZOLE [Suspect]
     Active Substance: ITRACONAZOLE
     Route: 065
  3. FERROUS FUMARATE [Concomitant]
     Active Substance: FERROUS FUMARATE
     Indication: Haemoglobin decreased
     Dosage: 2 MILLIGRAM/KILOGRAM, BID (EVERY 12 HOUR) (140 MILLIGRAM (MG) IN 5 MG)
     Route: 048
     Dates: start: 2004
  4. FOLIC ACID [Concomitant]
     Active Substance: FOLIC ACID
     Indication: Haemoglobin decreased
     Route: 065
     Dates: start: 2004

REACTIONS (1)
  - Gastritis [Recovered/Resolved]

NARRATIVE: CASE EVENT DATE: 20040907
